FAERS Safety Report 5032780-9 (Version None)
Quarter: 2006Q2

REPORT INFORMATION
  Report Type: 
  Country: None (occurrence: None)
  Receive Date: 20060620
  Receipt Date: 20060620
  Transmission Date: 20061013
  Serious: Yes (Other)
  Sender: FDA-Public Use
  Company Number: None

PATIENT
  Sex: Female

DRUGS (1)
  1. CEFAZOLIN [Suspect]
     Dates: start: 20050901

REACTIONS (2)
  - POSTOPERATIVE FEVER [None]
  - THERAPEUTIC PRODUCT CONTAMINATION [None]
